FAERS Safety Report 5793441-1 (Version None)
Quarter: 2008Q2

REPORT INFORMATION
  Report Type: 
  Country: None (occurrence: None)
  Receive Date: 20080627
  Receipt Date: 20080618
  Transmission Date: 20081010
  Serious: Yes (Other)
  Sender: FDA-Public Use
  Company Number: US-JNJFOC-20080605177

PATIENT
  Sex: Female
  Weight: 79.38 kg

DRUGS (7)
  1. DURAGESIC-100 [Suspect]
     Indication: PAIN
     Route: 062
  2. HYDROCODONE [Concomitant]
     Indication: PAIN
     Route: 048
  3. ULTRAM [Concomitant]
     Indication: PAIN
     Route: 048
  4. ORTHO-NOVUM 1/35 [Concomitant]
     Indication: CONTRACEPTION
     Dosage: 1 TABLET
     Route: 048
  5. STRATTERA [Concomitant]
     Indication: ATTENTION DEFICIT/HYPERACTIVITY DISORDER
     Route: 048
  6. LAMICITAL [Concomitant]
     Indication: ATTENTION DEFICIT/HYPERACTIVITY DISORDER
     Route: 048
  7. RISPERDAL [Concomitant]
     Indication: ATTENTION DEFICIT/HYPERACTIVITY DISORDER
     Route: 048

REACTIONS (5)
  - DRUG ADMINISTERED AT INAPPROPRIATE SITE [None]
  - INAPPROPRIATE SCHEDULE OF DRUG ADMINISTRATION [None]
  - PAIN [None]
  - PANCREATITIS [None]
  - WEIGHT DECREASED [None]
